FAERS Safety Report 22181262 (Version 1)
Quarter: 2023Q2

REPORT INFORMATION
  Report Type: Spontaneous
  Country: US (occurrence: None)
  Receive Date: 20230405
  Receipt Date: 20230405
  Transmission Date: 20230722
  Serious: Yes (Death, Life-Threatening)
  Sender: FDA-Public Use
  Company Number: None

PATIENT
  Age: 47 Year
  Sex: Male
  Weight: 75.15 kg

DRUGS (2)
  1. TRILEPTAL [Suspect]
     Active Substance: OXCARBAZEPINE
     Indication: Post-traumatic stress disorder
     Dates: start: 20230206
  2. TRILEPTAL [Suspect]
     Active Substance: OXCARBAZEPINE
     Indication: Craniocerebral injury

REACTIONS (10)
  - Tremor [None]
  - Tremor [None]
  - Nausea [None]
  - Headache [None]
  - Fatigue [None]
  - Emotional poverty [None]
  - Paranoia [None]
  - Completed suicide [None]
  - Gun shot wound [None]
  - Condition aggravated [None]

NARRATIVE: CASE EVENT DATE: 20230207
